FAERS Safety Report 5910735-7 (Version None)
Quarter: 2008Q4

REPORT INFORMATION
  Report Type: 
  Country: None (occurrence: None)
  Receive Date: 20081007
  Receipt Date: 20080408
  Transmission Date: 20090506
  Serious: No
  Sender: FDA-Public Use
  Company Number: US-ASTRAZENECA-2008UW07059

PATIENT
  Age: 65 Year
  Sex: Female

DRUGS (9)
  1. ARIMIDEX [Suspect]
     Indication: BREAST CANCER FEMALE
     Route: 048
     Dates: start: 20080313
  2. PROVENTIL [Concomitant]
  3. NASACORT [Concomitant]
  4. LORATADINE [Concomitant]
  5. ALPRAZOLAM [Concomitant]
  6. XANAX [Concomitant]
  7. ACTONEL [Concomitant]
  8. AMITRIPTYLINE HCL [Concomitant]
  9. LASIX [Concomitant]

REACTIONS (2)
  - FIBROMYALGIA [None]
  - HOT FLUSH [None]
